FAERS Safety Report 9853893 (Version 1)
Quarter: 2014Q1

REPORT INFORMATION
  Report Type: Spontaneous
  Country: US (occurrence: US)
  Receive Date: 20140129
  Receipt Date: 20140129
  Transmission Date: 20141002
  Serious: No
  Sender: FDA-Public Use
  Company Number: US-TEVA-458585USA

PATIENT
  Age: 14 Year
  Sex: Female
  Weight: 47.67 kg

DRUGS (3)
  1. NUVIGIL [Suspect]
     Indication: SLEEP DISORDER
     Dates: start: 20140115
  2. AMANTADINE [Concomitant]
     Indication: DISTURBANCE IN ATTENTION
  3. VITAMIN D [Concomitant]
     Indication: VITAMIN D DECREASED

REACTIONS (2)
  - Fatigue [Unknown]
  - Sleep disorder [Unknown]
